FAERS Safety Report 4547738-3 (Version None)
Quarter: 2005Q1

REPORT INFORMATION
  Report Type: 
  Country: None (occurrence: None)
  Receive Date: 20050107
  Receipt Date: 20031009
  Transmission Date: 20050727
  Serious: Yes (Hospitalization, Other)
  Sender: FDA-Public Use
  Company Number: US-MERCK-0310USA01305

PATIENT
  Age: 43 Year
  Sex: Female
  Weight: 99 kg

DRUGS (7)
  1. VIOXX [Suspect]
     Indication: BACK PAIN
     Route: 048
     Dates: start: 20010101
  2. VIOXX [Suspect]
     Indication: ARTHRITIS
     Route: 048
     Dates: start: 20010101
  3. DIURETIC (UNSPECIFIED) [Concomitant]
     Route: 065
     Dates: start: 20010101
  4. CLOTRIMAZOLE [Concomitant]
     Route: 065
  5. TRIAMTERENE [Concomitant]
     Route: 065
  6. TRI-NORINYL 21-DAY [Concomitant]
     Route: 065
  7. BRONCHOLATE [Concomitant]
     Route: 065

REACTIONS (18)
  - ANAEMIA [None]
  - APHASIA [None]
  - CEREBRAL ARTERY THROMBOSIS [None]
  - CEREBRAL INFARCTION [None]
  - CEREBROVASCULAR ACCIDENT [None]
  - COAGULATION FACTOR VIII LEVEL INCREASED [None]
  - CONVULSION [None]
  - DEMYELINATION [None]
  - DIABETES MELLITUS [None]
  - HYPERCOAGULATION [None]
  - HYPERTENSIVE HEART DISEASE [None]
  - INFECTION [None]
  - INTRACRANIAL ANEURYSM [None]
  - MUSCULOSKELETAL DISORDER [None]
  - NEOPLASM [None]
  - PAIN [None]
  - PEPTIC ULCER [None]
  - VASCULITIS [None]
